APPROVED DRUG PRODUCT: LENALIDOMIDE
Active Ingredient: LENALIDOMIDE
Strength: 10MG
Dosage Form/Route: CAPSULE;ORAL
Application: A218872 | Product #003 | TE Code: AB
Applicant: ACCORD HEALTHCARE INC
Approved: Nov 14, 2025 | RLD: No | RS: No | Type: RX